FAERS Safety Report 24400681 (Version 1)
Quarter: 2024Q4

REPORT INFORMATION
  Report Type: Spontaneous
  Country: US (occurrence: US)
  Receive Date: 20241006
  Receipt Date: 20241006
  Transmission Date: 20250115
  Serious: No
  Sender: SANOFI AVENTIS
  Company Number: US-SA-2024SA284574

PATIENT
  Age: 74 Year
  Sex: Male
  Weight: 123 kg

DRUGS (18)
  1. DUPIXENT [Suspect]
     Active Substance: DUPILUMAB
     Dosage: 300 MG, QOW
     Route: 058
  2. HYDROXYZINE HYDROCHLORIDE [Concomitant]
     Active Substance: HYDROXYZINE HYDROCHLORIDE
  3. MECLIZINE HYDROCHLORIDE [Concomitant]
     Active Substance: MECLIZINE HYDROCHLORIDE
  4. JARDIANCE [Concomitant]
     Active Substance: EMPAGLIFLOZIN
  5. KETOCONAZOLE [Concomitant]
     Active Substance: KETOCONAZOLE
  6. AMLODIPINE BESYLATE [Concomitant]
     Active Substance: AMLODIPINE BESYLATE
  7. LOSARTAN POTASSIUM [Concomitant]
     Active Substance: LOSARTAN POTASSIUM
  8. SYNTHROID [Concomitant]
     Active Substance: LEVOTHYROXINE SODIUM
  9. HYDROCHLOROTHIAZIDE [Concomitant]
     Active Substance: HYDROCHLOROTHIAZIDE
  10. CARVEDILOL [Concomitant]
     Active Substance: CARVEDILOL
  11. ATORVASTATIN CALCIUM [Concomitant]
     Active Substance: ATORVASTATIN CALCIUM
  12. TAMSULOSIN HYDROCHLORIDE [Concomitant]
     Active Substance: TAMSULOSIN HYDROCHLORIDE
  13. GLIPIZIDE [Concomitant]
     Active Substance: GLIPIZIDE
  14. METHOCARBAMOL [Concomitant]
     Active Substance: METHOCARBAMOL
  15. LORATADINE [Concomitant]
     Active Substance: LORATADINE
  16. RIZATRIPTAN [Concomitant]
     Active Substance: RIZATRIPTAN
  17. AZITHROMYCIN [Concomitant]
     Active Substance: AZITHROMYCIN
  18. LANTUS SOLOSTAR [Concomitant]
     Active Substance: INSULIN GLARGINE

REACTIONS (8)
  - Sleep disorder [Unknown]
  - Pain in jaw [Unknown]
  - Otorrhoea [Unknown]
  - Pain [Unknown]
  - Nausea [Unknown]
  - Back pain [Recovered/Resolved]
  - Vertigo [Unknown]
  - Pruritus [Not Recovered/Not Resolved]

NARRATIVE: CASE EVENT DATE: 20240901
